FAERS Safety Report 5306128-6 (Version None)
Quarter: 2007Q2

REPORT INFORMATION
  Report Type: 
  Country: None (occurrence: None)
  Receive Date: 20070424
  Receipt Date: 20070420
  Transmission Date: 20071010
  Serious: Yes (Hospitalization, Other)
  Sender: FDA-Public Use
  Company Number: US-BRISTOL-MYERS SQUIBB COMPANY-13716766

PATIENT
  Age: 53 Year
  Sex: Male
  Weight: 72 kg

DRUGS (3)
  1. CETUXIMAB [Suspect]
     Indication: NEOPLASM MALIGNANT
     Dates: start: 20070306, end: 20070306
  2. CISPLATIN [Suspect]
     Indication: NEOPLASM MALIGNANT
     Dates: start: 20070402, end: 20070402
  3. RADIATION THERAPY [Suspect]
     Indication: NEOPLASM MALIGNANT

REACTIONS (7)
  - COUGH [None]
  - DEHYDRATION [None]
  - FEBRILE NEUTROPENIA [None]
  - GRANULOCYTE COUNT DECREASED [None]
  - HYPERSENSITIVITY [None]
  - NAUSEA [None]
  - SALIVARY GLAND DISORDER [None]
